FAERS Safety Report 10374587 (Version 1)
Quarter: 2014Q3

REPORT INFORMATION
  Report Type: Spontaneous
  Country: US (occurrence: None)
  Receive Date: 20140808
  Receipt Date: 20140808
  Transmission Date: 20150326
  Serious: No
  Sender: FDA-Public Use
  Company Number: None

PATIENT
  Age: 50 Year
  Sex: Male
  Weight: 119.3 kg

DRUGS (1)
  1. AMBIEN [Suspect]
     Active Substance: ZOLPIDEM TARTRATE
     Indication: INSOMNIA
     Dosage: 1 PILL  ONCE DAILY  TAKEN BY MOUTH
     Route: 048
     Dates: start: 20140601, end: 20140731

REACTIONS (6)
  - Sleep talking [None]
  - Memory impairment [None]
  - Fall [None]
  - Sleep-related eating disorder [None]
  - Somnambulism [None]
  - Restlessness [None]

NARRATIVE: CASE EVENT DATE: 20140720
